FAERS Safety Report 5428933-8 (Version None)
Quarter: 2007Q3

REPORT INFORMATION
  Report Type: 
  Country: None (occurrence: None)
  Receive Date: 20070827
  Receipt Date: 20070815
  Transmission Date: 20080115
  Serious: Yes (Other)
  Sender: FDA-Public Use
  Company Number: US-GDP-0715256

PATIENT
  Age: 16 Year
  Sex: Female

DRUGS (3)
  1. METROGEL [Suspect]
     Indication: ACNE
     Dates: start: 20070801, end: 20070815
  2. DOXYCYCLINE [Concomitant]
  3. TAZORAC [Concomitant]

REACTIONS (2)
  - HYPOAESTHESIA [None]
  - PARAESTHESIA [None]
